FAERS Safety Report 12901259 (Version 6)
Quarter: 2019Q1

REPORT INFORMATION
  Report Type: Report from Study
  Country: None (occurrence: DE)
  Receive Date: 20161101
  Receipt Date: 20190123
  Transmission Date: 20190417
  Serious: Yes (Hospitalization)
  Sender: FDA-Public Use
  Company Number: DE-ABBVIE-16P-062-1738349-00

PATIENT
  Age: 84 Year
  Sex: Male
  Weight: 57.1 kg

DRUGS (15)
  1. PREPACOL [Concomitant]
     Indication: LAXATIVE SUPPORTIVE CARE
     Route: 048
     Dates: start: 20160922, end: 20160922
  2. VENETOCLAX. [Suspect]
     Active Substance: VENETOCLAX
     Indication: CHRONIC LYMPHOCYTIC LEUKAEMIA
     Dosage: LAST DOSE: 21 SEP 2016 AT 400MG; LAST DOSE 27 NOV 2016 AT 100MG
     Route: 048
     Dates: start: 20160125
  3. MELPERON [Concomitant]
     Active Substance: MELPERONE
     Indication: RESTLESSNESS
     Route: 048
     Dates: start: 20180829
  4. KALINOR RETARD [Concomitant]
     Active Substance: POTASSIUM CHLORIDE
     Indication: HYPOKALAEMIA
     Route: 048
     Dates: start: 20180908
  5. CLEXANE [Concomitant]
     Active Substance: ENOXAPARIN SODIUM
     Indication: PROPHYLAXIS
     Route: 058
     Dates: start: 20180829, end: 20180831
  6. JONOSTERIL [Concomitant]
     Route: 042
     Dates: start: 20180829, end: 20180831
  7. GA101 [Suspect]
     Active Substance: OBINUTUZUMAB
     Indication: CHRONIC LYMPHOCYTIC LEUKAEMIA
     Dosage: LAST DOSE ADMINISTERED PRIOR TO EVENT ONSET ON 24 MAY 2016 AT 0945HRS
     Route: 042
     Dates: start: 20160104
  8. COTRIM FORTE [Concomitant]
     Active Substance: SULFAMETHOXAZOLE\TRIMETHOPRIM
     Indication: PROPHYLAXIS
     Route: 048
     Dates: start: 20160104, end: 20160926
  9. TAMSULOSIN [Concomitant]
     Active Substance: TAMSULOSIN
     Indication: PROSTATOMEGALY
     Route: 048
     Dates: start: 201601, end: 20160926
  10. ATOSIL [Concomitant]
     Active Substance: PROMETHAZINE HYDROCHLORIDE
     Indication: RESTLESSNESS
     Route: 048
     Dates: start: 20180830, end: 20180830
  11. PREENTEROL FORTE [Concomitant]
     Indication: DIARRHOEA
     Route: 048
     Dates: start: 20180829
  12. ACICLOVIR [Concomitant]
     Active Substance: ACYCLOVIR
     Indication: PROPHYLAXIS
     Route: 048
     Dates: start: 20160104, end: 20160926
  13. JONOSTERIL [Concomitant]
     Indication: DEHYDRATION
     Route: 042
     Dates: start: 20180829, end: 20180831
  14. ALLOPURINOL. [Concomitant]
     Active Substance: ALLOPURINOL
     Indication: PROPHYLAXIS
     Route: 048
     Dates: start: 20160101, end: 20160830
  15. PROPOFOL. [Concomitant]
     Active Substance: PROPOFOL
     Indication: ANAESTHESIA
     Route: 042
     Dates: start: 20160923, end: 20160923

REACTIONS (3)
  - Pneumonia [Recovered/Resolved]
  - Colitis [Recovered/Resolved with Sequelae]
  - Enterocolitis [Recovered/Resolved]

NARRATIVE: CASE EVENT DATE: 20160922
